FAERS Safety Report 5289103-X (Version None)
Quarter: 2007Q1

REPORT INFORMATION
  Report Type: 
  Country: None (occurrence: None)
  Receive Date: 20070124
  Receipt Date: 20060602
  Transmission Date: 20070707
  Serious: Yes (Hospitalization)
  Sender: FDA-Public Use
  Company Number: US200605003774

PATIENT
  Age: 74 Year
  Sex: Female

DRUGS (7)
  1. FORTEO [Suspect]
     Indication: OSTEOPOROSIS
     Dates: start: 20060201
  2. FORTEO [Concomitant]
  3. ADVAIR DISKUS 100/50 [Concomitant]
  4. LOTREL [Concomitant]
  5. LESCOL [Concomitant]
  6. DETROL [Concomitant]
  7. PLAVIX [Concomitant]

REACTIONS (5)
  - DYSPNOEA [None]
  - HAEMOPTYSIS [None]
  - INFLUENZA [None]
  - NASOPHARYNGITIS [None]
  - PNEUMONIA [None]
